FAERS Safety Report 10490547 (Version 10)
Quarter: 2016Q2

REPORT INFORMATION
  Report Type: Spontaneous
  Country: DE (occurrence: DE)
  Receive Date: 20141002
  Receipt Date: 20160615
  Transmission Date: 20160815
  Serious: Yes (Hospitalization, Disabling, Other)
  Sender: FDA-Public Use
  Company Number: DE-BAXTER-2014BAX024512

PATIENT
  Age: 43 Year
  Sex: Male
  Weight: 83 kg

DRUGS (3)
  1. RAMIPRIL. [Concomitant]
     Active Substance: RAMIPRIL
     Indication: PRODUCT USED FOR UNKNOWN INDICATION
     Route: 065
  2. HCT25-BETA [Concomitant]
     Indication: PRODUCT USED FOR UNKNOWN INDICATION
     Route: 065
  3. SUPRANE [Suspect]
     Active Substance: DESFLURANE
     Indication: OCCUPATIONAL EXPOSURE TO PRODUCT
     Route: 031
     Dates: start: 20131029

REACTIONS (18)
  - Eye irritation [Not Recovered/Not Resolved]
  - Conjunctivitis [Unknown]
  - Eyelid ptosis [Unknown]
  - Glaucoma [Unknown]
  - Cutis laxa [Unknown]
  - Keratitis [Unknown]
  - Astigmatism [Unknown]
  - Ureterolithiasis [Unknown]
  - Visual impairment [Not Recovered/Not Resolved]
  - Dry eye [Unknown]
  - Chemical burns of eye [Recovering/Resolving]
  - Exposure via direct contact [Not Recovered/Not Resolved]
  - Punctate keratitis [Not Recovered/Not Resolved]
  - Blepharitis [Unknown]
  - Dry eye [Not Recovered/Not Resolved]
  - Hypermetropia [Unknown]
  - Occupational exposure to product [Unknown]
  - Floppy eyelid syndrome [Unknown]

NARRATIVE: CASE EVENT DATE: 20131029
